FAERS Safety Report 7140928-5 (Version None)
Quarter: 2010Q4

REPORT INFORMATION
  Report Type: 
  Country: None (occurrence: None)
  Receive Date: 20101201
  Receipt Date: 20101201
  Transmission Date: 20110411
  Serious: Yes (Life-Threatening, Hospitalization)
  Sender: FDA-Public Use
  Company Number: None

PATIENT
  Age: 56 Year
  Sex: Male
  Weight: 75.5 kg

DRUGS (1)
  1. WARFARIN SODIUM [Suspect]
     Indication: ATRIAL FIBRILLATION
     Dosage: 2.5 MG HS PO
     Route: 048
     Dates: start: 20070604, end: 20101108

REACTIONS (15)
  - ANAEMIA [None]
  - ANGIOEDEMA [None]
  - CHEST PAIN [None]
  - DIZZINESS [None]
  - GASTRIC HAEMORRHAGE [None]
  - HAEMATOCHEZIA [None]
  - HAEMOGLOBIN DECREASED [None]
  - HAEMORRHAGE [None]
  - HYPOAESTHESIA [None]
  - HYPOTENSION [None]
  - INTERNATIONAL NORMALISED RATIO INCREASED [None]
  - PARAESTHESIA [None]
  - PEPTIC ULCER [None]
  - RESPIRATORY DEPRESSION [None]
  - THROMBOSIS [None]
